FAERS Safety Report 23706003 (Version 1)
Quarter: 2024Q2

REPORT INFORMATION
  Report Type: Other
  Country: US (occurrence: US)
  Receive Date: 20240404
  Receipt Date: 20240404
  Transmission Date: 20240716
  Serious: Yes (Hospitalization, Other)
  Sender: FDA-Public Use
  Company Number: US-Zhejiang Yongtai pharmaceuticals Co..,Ltd.-2155219

PATIENT
  Age: 62 Year
  Sex: Male

DRUGS (3)
  1. DOXYCYCLINE HYCLATE [Suspect]
     Active Substance: DOXYCYCLINE HYCLATE
     Indication: Pneumothorax
     Route: 065
  2. SODIUM CHLORIDE [Concomitant]
     Active Substance: SODIUM CHLORIDE
     Route: 065
  3. BUPIVACAINE [Concomitant]
     Active Substance: BUPIVACAINE
     Route: 065

REACTIONS (4)
  - Pulmonary toxicity [Recovered/Resolved]
  - Product use in unapproved indication [Unknown]
  - Acute respiratory failure [Recovered/Resolved]
  - Bronchospasm [Recovered/Resolved]
